FAERS Safety Report 9901655 (Version 1)
Quarter: 2014Q1

REPORT INFORMATION
  Report Type: Report from Study
  Country: US (occurrence: US)
  Receive Date: 20140217
  Receipt Date: 20140217
  Transmission Date: 20141002
  Serious: Yes (Death)
  Sender: FDA-Public Use
  Company Number: PHEH2014US003166

PATIENT
  Age: 38 Year
  Sex: Male
  Weight: 90.7 kg

DRUGS (1)
  1. EXJADE [Suspect]
     Indication: HAEMOSIDEROSIS
     Dosage: 3 DF, DAILY
     Route: 048
     Dates: start: 201112

REACTIONS (1)
  - Death [Fatal]
